FAERS Safety Report 19264352 (Version 1)
Quarter: 2021Q2

REPORT INFORMATION
  Report Type: Spontaneous
  Country: US (occurrence: US)
  Receive Date: 20210517
  Receipt Date: 20210517
  Transmission Date: 20210717
  Serious: Yes (Death)
  Sender: FDA-Public Use
  Company Number: None

PATIENT
  Age: 77 Year
  Sex: Male

DRUGS (2)
  1. STELARA [Suspect]
     Active Substance: USTEKINUMAB
     Indication: PSORIASIS
     Dosage: ?          OTHER FREQUENCY:EVERY 12 WEEKS;?
     Route: 058
     Dates: start: 20200713, end: 20210513
  2. STELARA [Concomitant]
     Active Substance: USTEKINUMAB
     Dates: start: 20200713, end: 20210513

REACTIONS (1)
  - Hospice care [None]

NARRATIVE: CASE EVENT DATE: 20210513
